FAERS Safety Report 7926749 (Version 3)
Quarter: 2014Q2

REPORT INFORMATION
  Report Type: Spontaneous
  Country: US (occurrence: US)
  Receive Date: 20110502
  Receipt Date: 20140605
  Transmission Date: 20141212
  Serious: No
  Sender: FDA-Public Use
  Company Number: US-ASTRAZENECA-2011SE09733

PATIENT
  Age: 79 Year
  Sex: Female

DRUGS (7)
  1. NEXIUM [Suspect]
     Indication: ABDOMINAL DISCOMFORT
     Dosage: TAKEN  IT ONE HOUR PRIOR TO A MEAL
     Route: 048
     Dates: start: 2001
  2. SYMBICORT PMDI [Suspect]
     Indication: DYSPNOEA
     Dosage: 320/9 MCG, BID
     Route: 055
     Dates: start: 20140510
  3. SYMBICORT PMDI [Suspect]
     Indication: CHRONIC OBSTRUCTIVE PULMONARY DISEASE
     Dosage: 320/9 MCG, BID
     Route: 055
     Dates: start: 20140510
  4. LIPITOR [Concomitant]
  5. CARDIZEM [Concomitant]
  6. ALBUTEROL [Concomitant]
  7. ZOPINEX HFA [Concomitant]

REACTIONS (12)
  - Dyspepsia [Unknown]
  - Feeling abnormal [Unknown]
  - Dysphonia [Not Recovered/Not Resolved]
  - Throat irritation [Not Recovered/Not Resolved]
  - Back pain [Not Recovered/Not Resolved]
  - Glossodynia [Unknown]
  - Dyspnoea exertional [Unknown]
  - Dyspnoea [Unknown]
  - Headache [Not Recovered/Not Resolved]
  - Dizziness [Unknown]
  - Inappropriate schedule of drug administration [Unknown]
  - Intentional product misuse [Unknown]
